FAERS Safety Report 16162597 (Version 3)
Quarter: 2019Q2

REPORT INFORMATION
  Report Type: Spontaneous
  Country: DE (occurrence: DE)
  Receive Date: 20190405
  Receipt Date: 20190412
  Transmission Date: 20190711
  Serious: Yes (Hospitalization, Other)
  Sender: FDA-Public Use
  Company Number: DE-HETERO CORPORATE-HET2019DE00438

PATIENT
  Age: 2 Year
  Sex: Male

DRUGS (1)
  1. LEVETIRACETAM. [Suspect]
     Active Substance: LEVETIRACETAM
     Indication: EPILEPSY
     Dosage: 16 MILLILITER, QD
     Route: 048

REACTIONS (4)
  - Seizure [Unknown]
  - Treatment noncompliance [Unknown]
  - Product administration error [Unknown]
  - Underdose [Unknown]

NARRATIVE: CASE EVENT DATE: 20180727
